FAERS Safety Report 9374740 (Version 1)
Quarter: 2013Q2

REPORT INFORMATION
  Report Type: Other
  Country: DE (occurrence: DE)
  Receive Date: 20130628
  Receipt Date: 20130628
  Transmission Date: 20140414
  Serious: Yes (Life-Threatening, Hospitalization)
  Sender: FDA-Public Use
  Company Number: DE-SUN PHARMACEUTICAL INDUSTRIES LTD-2013SUN00859

PATIENT
  Sex: 0

DRUGS (1)
  1. GEMCITABINE SUN 200 MG PULVER ZUR HERSTELLUNG EINER INFUSIONSL?SUNG [Suspect]
     Indication: NEOPLASM MALIGNANT
     Dosage: 1000 MG, UNK
     Route: 042
     Dates: start: 20121016, end: 20130226

REACTIONS (1)
  - Cardiomyopathy [Recovering/Resolving]
